FAERS Safety Report 25862931 (Version 1)
Quarter: 2025Q3

REPORT INFORMATION
  Report Type: Report from Study
  Country: GB (occurrence: GB)
  Receive Date: 20250930
  Receipt Date: 20250930
  Transmission Date: 20251021
  Serious: Yes (Other)
  Sender: NOVARTIS
  Company Number: GB-002147023-NVSC2021GB137897

PATIENT
  Sex: Female
  Weight: 64.8 kg

DRUGS (2)
  1. COSENTYX [Suspect]
     Active Substance: SECUKINUMAB
     Indication: Ankylosing spondylitis
     Dosage: 150 MG, QMO
     Route: 058
     Dates: start: 20181223
  2. COSENTYX [Suspect]
     Active Substance: SECUKINUMAB
     Route: 058
     Dates: start: 20210625, end: 20240509

REACTIONS (8)
  - Ankylosing spondylitis [Unknown]
  - Autoimmune hepatitis [Recovered/Resolved]
  - Full blood count abnormal [Unknown]
  - Hepatic function abnormal [Not Recovered/Not Resolved]
  - Feeling abnormal [Unknown]
  - Joint stiffness [Unknown]
  - Mobility decreased [Unknown]
  - Immune system disorder [Unknown]

NARRATIVE: CASE EVENT DATE: 20210625
